FAERS Safety Report 9179092 (Version 1)
Quarter: 2012Q4

REPORT INFORMATION
  Report Type: Report from Study
  Country: DE (occurrence: JP)
  Receive Date: 20121029
  Receipt Date: 20121029
  Transmission Date: 20130627
  Serious: Yes (Other)
  Sender: FDA-Public Use
  Company Number: JP-BRISTOL-MYERS SQUIBB COMPANY-17049149

PATIENT
  Age: 72 Year
  Sex: Male
  Weight: 55 kg

DRUGS (11)
  1. ERBITUX SOLN FOR INF 5MG/ML [Suspect]
     Indication: RECTAL CANCER
     Dosage: 375mg/wk(including skipped week)
20Nov08-20Nov08
04dec08-22Jan09
Dose reduced-180mg on 18Dec08
     Route: 041
     Dates: start: 20081120, end: 20090122
  2. CPT-11 [Suspect]
     Indication: RECTAL CANCER
     Dosage: 225mg:1/2wk:20Nov08-unk
180mg/2wk:18Dec08-08Jan09
     Route: 041
     Dates: start: 20081120, end: 20090108
  3. DECADRON [Concomitant]
     Indication: PREMEDICATION
     Dosage: IV inf
20Nov08-22Nov09(includingf skipped week)
Before erbitux inf
     Route: 042
     Dates: start: 20081120, end: 20090122
  4. POLARAMINE [Concomitant]
     Indication: PREMEDICATION
     Route: 042
     Dates: start: 20081120, end: 20090122
  5. OLMETEC [Concomitant]
     Indication: HYPERTENSION
     Dosage: tab
     Route: 048
     Dates: start: 20081119
  6. CONIEL [Concomitant]
     Indication: HYPERTENSION
     Dosage: tab
     Route: 048
     Dates: start: 20081119
  7. MUCOSTA [Concomitant]
     Indication: GASTRIC ULCER
     Dosage: tab
     Route: 048
     Dates: start: 20081119
  8. AMOBAN [Concomitant]
     Indication: INSOMNIA
     Dosage: tab
     Route: 048
     Dates: start: 20081119
  9. OMEPRAL [Concomitant]
     Indication: GASTRIC ULCER
     Route: 048
     Dates: start: 20081119
  10. MAGLAX [Concomitant]
     Indication: CONSTIPATION
     Dosage: tab
     Route: 048
     Dates: start: 20081119
  11. YODEL-S [Concomitant]
     Indication: CONSTIPATION
     Route: 048
     Dates: start: 20081119

REACTIONS (10)
  - Ventricular arrhythmia [Recovering/Resolving]
  - Blood bilirubin increased [Recovered/Resolved]
  - Myalgia [Recovering/Resolving]
  - White blood cell count decreased [Recovered/Resolved]
  - Neutrophil count decreased [Recovered/Resolved]
  - Rash [Recovering/Resolving]
  - Paronychia [Recovering/Resolving]
  - Pruritus [Recovering/Resolving]
  - Malaise [Recovered/Resolved]
  - Diarrhoea [Recovered/Resolved]
